FAERS Safety Report 10215822 (Version 1)
Quarter: 2014Q2

REPORT INFORMATION
  Report Type: Spontaneous
  Country: AT (occurrence: AT)
  Receive Date: 20140604
  Receipt Date: 20140604
  Transmission Date: 20141212
  Serious: Yes (Life-Threatening)
  Sender: FDA-Public Use
  Company Number: PHHY2014AT067832

PATIENT
  Sex: Male

DRUGS (2)
  1. EXFORGE [Suspect]
     Dosage: UNK UKN, UNK
  2. EXFORGE [Suspect]
     Dosage: 740 MG OF VALSARTAN

REACTIONS (2)
  - Apparent death [Unknown]
  - Overdose [Unknown]
